FAERS Safety Report 12244589 (Version 2)
Quarter: 2016Q2

REPORT INFORMATION
  Report Type: Spontaneous
  Country: US (occurrence: US)
  Receive Date: 20160407
  Receipt Date: 20160407
  Transmission Date: 20160815
  Serious: No
  Sender: FDA-Public Use
  Company Number: US-HOSPIRA-2743890

PATIENT
  Age: 74 Year
  Sex: Female
  Weight: 77.11 kg

DRUGS (2)
  1. CIPROFLOXACIN. [Suspect]
     Active Substance: CIPROFLOXACIN
     Indication: SEPSIS
     Dosage: X 1
     Route: 041
     Dates: start: 20150130, end: 20150130
  2. CIPROFLOXACIN. [Suspect]
     Active Substance: CIPROFLOXACIN
     Indication: URINARY TRACT INFECTION
     Dosage: X 1
     Route: 041
     Dates: start: 20150130, end: 20150130

REACTIONS (1)
  - Phlebitis [Recovered/Resolved]

NARRATIVE: CASE EVENT DATE: 20150130
